FAERS Safety Report 9689090 (Version 1)
Quarter: 2013Q4

REPORT INFORMATION
  Report Type: Spontaneous
  Country: US (occurrence: US)
  Receive Date: 20131114
  Receipt Date: 20131114
  Transmission Date: 20140711
  Serious: No
  Sender: FDA-Public Use
  Company Number: US-TEVA-443154USA

PATIENT
  Age: 76 Year
  Sex: Male

DRUGS (2)
  1. TREANDA [Suspect]
     Indication: PRODUCT USED FOR UNKNOWN INDICATION
     Dates: start: 20130215
  2. RITUXIMAB [Concomitant]

REACTIONS (2)
  - Rash [Unknown]
  - Blister [Unknown]
